FAERS Safety Report 4906237-7 (Version None)
Quarter: 2006Q1

REPORT INFORMATION
  Report Type: 
  Country: None (occurrence: None)
  Receive Date: 20060207
  Receipt Date: 20060125
  Transmission Date: 20060701
  Serious: Yes (Life-Threatening, Hospitalization)
  Sender: FDA-Public Use
  Company Number: 2006014549

PATIENT
  Age: 12 Year
  Sex: Male
  Weight: 40 kg

DRUGS (2)
  1. SULPERAZON (SULBACTAM, CEFOPERAZONE) [Suspect]
     Indication: PERITONITIS
     Dosage: 2 GRAM (2 GRAM, 2 IN 1 D), INTRAVENOUS; SEE IMAGE
     Route: 042
     Dates: start: 20051229, end: 20060103
  2. SULPERAZON (SULBACTAM, CEFOPERAZONE) [Suspect]
     Indication: PERITONITIS
     Dosage: 2 GRAM (2 GRAM, 2 IN 1 D), INTRAVENOUS; SEE IMAGE
     Route: 042
     Dates: start: 20051229, end: 20060103

REACTIONS (3)
  - ANURIA [None]
  - HAEMODIALYSIS [None]
  - RENAL FAILURE ACUTE [None]
